FAERS Safety Report 19029973 (Version 1)
Quarter: 2021Q1

REPORT INFORMATION
  Report Type: Spontaneous
  Country: CO (occurrence: CO)
  Receive Date: 20210319
  Receipt Date: 20210319
  Transmission Date: 20210420
  Serious: Yes (Disabling)
  Sender: FDA-Public Use
  Company Number: CO-AMGEN-COLSP2020186491

PATIENT
  Age: 59 Year
  Sex: Female

DRUGS (1)
  1. ENBREL [Suspect]
     Active Substance: ETANERCEPT
     Indication: PRODUCT USED FOR UNKNOWN INDICATION
     Dosage: 50 MG, WEEKLY
     Route: 058
     Dates: end: 202010

REACTIONS (10)
  - Renal pain [Unknown]
  - Inflammation [Unknown]
  - Fatigue [Unknown]
  - Asthenia [Unknown]
  - Headache [Unknown]
  - Weight increased [Unknown]
  - Vomiting [Unknown]
  - Nausea [Unknown]
  - Dizziness [Unknown]
  - Back pain [Unknown]
